FAERS Safety Report 6822343-4 (Version None)
Quarter: 2010Q3

REPORT INFORMATION
  Report Type: 
  Country: None (occurrence: None)
  Receive Date: 20100708
  Receipt Date: 20100623
  Transmission Date: 20110219
  Serious: Yes (Other)
  Sender: FDA-Public Use
  Company Number: PHFR2010GB01045

PATIENT
  Age: 70 Year
  Sex: Male
  Weight: 73.2 kg

DRUGS (5)
  1. ZOLEDRONIC ACID [Suspect]
     Indication: MULTIPLE MYELOMA
     Dosage: 4MG
     Route: 042
     Dates: start: 20061204, end: 20100413
  2. COLCHICINE [Concomitant]
  3. DEXAMETHASONE [Concomitant]
     Dosage: 20 MG
  4. LENALIDOMIDE [Concomitant]
     Dosage: 25MG
  5. WARFARIN [Concomitant]

REACTIONS (2)
  - OSTEONECROSIS OF JAW [None]
  - PAIN IN JAW [None]
